FAERS Safety Report 18000096 (Version 1)
Quarter: 2020Q3

REPORT INFORMATION
  Report Type: Other
  Country: GB (occurrence: GB)
  Receive Date: 20200709
  Receipt Date: 20200709
  Transmission Date: 20201103
  Serious: Yes (Other)
  Sender: FDA-Public Use
  Company Number: GB-STRIDES ARCOLAB LIMITED-2020SP007917

PATIENT
  Age: 69 Year
  Sex: Female
  Weight: 56.9 kg

DRUGS (1)
  1. GABAPENTIN. [Suspect]
     Active Substance: GABAPENTIN
     Indication: NEURALGIA
     Dosage: 300 MILLIGRAM, QD (AT NIGHT)
     Route: 048
     Dates: start: 20200615, end: 20200624

REACTIONS (3)
  - Insomnia [Recovered/Resolved]
  - Burning sensation [Recovered/Resolved]
  - Neuropathy peripheral [Recovered/Resolved]

NARRATIVE: CASE EVENT DATE: 20200615
